FAERS Safety Report 5642598-1 (Version None)
Quarter: 2008Q1

REPORT INFORMATION
  Report Type: 
  Country: None (occurrence: None)
  Receive Date: 20080227
  Receipt Date: 20080227
  Transmission Date: 20080703
  Serious: Yes (Hospitalization)
  Sender: FDA-Public Use
  Company Number: None

PATIENT
  Sex: Female
  Weight: 73.4827 kg

DRUGS (10)
  1. ASPIRIN [Suspect]
     Indication: OSTEOARTHRITIS
     Dosage: PO  (THERAPY DATES: PRIOR TO ADMISSION)
     Route: 048
  2. DICLOFENAC SODIUM [Suspect]
     Indication: OSTEOARTHRITIS
     Dosage: PO  (THERAPY DATES:  PRIOR TO  ADMISSION)
     Route: 048
  3. SIMVASTATIN [Concomitant]
  4. AMITRIPTYLINE HCL [Concomitant]
  5. AMARYL [Concomitant]
  6. SULAR [Concomitant]
  7. LISINOPRIL [Concomitant]
  8. ACTOS [Concomitant]
  9. CYMBALTA [Concomitant]
  10. METOPROLOL TARTRATE [Concomitant]

REACTIONS (2)
  - ANAEMIA [None]
  - GASTROINTESTINAL HAEMORRHAGE [None]
